FAERS Safety Report 8059329-0 (Version None)
Quarter: 2012Q1

REPORT INFORMATION
  Report Type: 
  Country: None (occurrence: None)
  Receive Date: 20120120
  Receipt Date: 20120111
  Transmission Date: 20120608
  Serious: Yes (Death, Congenital Anomaly)
  Sender: FDA-Public Use
  Company Number: ES-SANOFI-AVENTIS-2012SA002304

PATIENT
  Sex: Female

DRUGS (1)
  1. LEFLUNOMIDE [Suspect]
     Indication: RHEUMATOID ARTHRITIS
     Dosage: THERAPY START: MORE THAN ONE YEAR AGO
     Route: 064
     Dates: end: 20110101

REACTIONS (5)
  - CONGENITAL CYSTIC KIDNEY DISEASE [None]
  - DILATATION VENTRICULAR [None]
  - DEVELOPMENTAL DELAY [None]
  - MATERNAL EXPOSURE DURING PREGNANCY [None]
  - TERATOGENICITY [None]
